FAERS Safety Report 8774802 (Version 2)
Quarter: 2012Q4

REPORT INFORMATION
  Report Type: 
  Country: US (occurrence: US)
  Receive Date: 20120910
  Receipt Date: 20121226
  Transmission Date: 20130627
  Serious: Yes (Hospitalization)
  Sender: FDA-Public Use
  Company Number: US-BAYER-2012-093467

PATIENT
  Age: 33 Year
  Sex: Female
  Weight: 94.33 kg

DRUGS (7)
  1. OCELLA [Suspect]
     Dosage: UNK
     Dates: start: 201104, end: 201104
  2. OCELLA [Suspect]
     Dosage: UNK
     Dates: start: 201108, end: 201108
  3. ALTACE [Concomitant]
     Indication: HYPERTENSION
     Dosage: 5 mg, daily
     Route: 048
     Dates: start: 2009, end: 2011
  4. NSAID^S [Concomitant]
  5. ROBINUL [Concomitant]
     Indication: HYPERHIDROSIS
     Dosage: UNK
     Route: 048
     Dates: start: 2010
  6. ZOCOR [Concomitant]
     Dosage: 20 mg, daily
     Route: 048
  7. GLYCOPYRROLATE [Concomitant]
     Dosage: 1 mg, UNK

REACTIONS (6)
  - Pulmonary embolism [None]
  - Injury [None]
  - Pain [None]
  - Chest pain [None]
  - Dyspnoea [None]
  - Pain in extremity [None]
